FAERS Safety Report 5726810-6 (Version None)
Quarter: 2008Q2

REPORT INFORMATION
  Report Type: 
  Country: None (occurrence: None)
  Receive Date: 20080502
  Receipt Date: 20080424
  Transmission Date: 20081010
  Serious: Yes (Death)
  Sender: FDA-Public Use
  Company Number: US-PFIZER INC-2008023955

PATIENT
  Sex: Male

DRUGS (3)
  1. LIPITOR [Suspect]
     Indication: BLOOD CHOLESTEROL INCREASED
  2. GLUCOTROL [Suspect]
     Indication: DIABETES MELLITUS
  3. DETROL LA [Suspect]
     Indication: POLLAKIURIA

REACTIONS (1)
  - DEATH [None]
